FAERS Safety Report 16805409 (Version 5)
Quarter: 2021Q4

REPORT INFORMATION
  Report Type: Other
  Country: ES (occurrence: ES)
  Receive Date: 20190913
  Receipt Date: 20211115
  Transmission Date: 20220303
  Serious: Yes (Other)
  Sender: FDA-Public Use
  Company Number: ES-APOTEX-2019AP021815

PATIENT
  Age: 41 Year
  Sex: Male

DRUGS (35)
  1. PAROXETINE HYDROCHLORIDE [Suspect]
     Active Substance: PAROXETINE HYDROCHLORIDE
     Indication: Migraine
     Dosage: UNK
     Route: 065
  2. PAROXETINE HYDROCHLORIDE [Suspect]
     Active Substance: PAROXETINE HYDROCHLORIDE
     Dosage: UNK
     Route: 065
  3. TOPIRAMATE [Suspect]
     Active Substance: TOPIRAMATE
     Indication: Migraine
     Dosage: 50 MG, UNK
     Route: 065
  4. TOPIRAMATE [Suspect]
     Active Substance: TOPIRAMATE
     Dosage: 25 MG, QD
     Route: 065
     Dates: start: 200906
  5. IBUPROFEN [Suspect]
     Active Substance: IBUPROFEN
     Indication: Migraine
     Dosage: UNK
     Route: 065
  6. IBUPROFEN [Suspect]
     Active Substance: IBUPROFEN
     Dosage: UNK
     Route: 065
  7. PREDNISONE [Suspect]
     Active Substance: PREDNISONE
     Indication: Migraine
     Dosage: 60 MG, QD
     Route: 065
  8. PREDNISONE [Suspect]
     Active Substance: PREDNISONE
     Dosage: 60 MG, QD
     Route: 065
  9. LAMOTRIGINE [Suspect]
     Active Substance: LAMOTRIGINE
     Indication: Migraine
     Dosage: 50 MG, QD
     Route: 065
     Dates: start: 201110
  10. TRYPTIZOL [Suspect]
     Active Substance: AMITRIPTYLINE HYDROCHLORIDE
     Indication: Migraine
     Dosage: 10 MG, QD
     Route: 065
     Dates: start: 201211
  11. TRYPTIZOL [Suspect]
     Active Substance: AMITRIPTYLINE HYDROCHLORIDE
     Dosage: 1 DF, QD
     Route: 065
  12. BOTOX [Suspect]
     Active Substance: ONABOTULINUMTOXINA
     Indication: Migraine
     Dosage: 150 IU, UNK SINGLE
     Route: 065
  13. BOTOX [Suspect]
     Active Substance: ONABOTULINUMTOXINA
     Dosage: 100 IU, UNK (SINGLE)
     Route: 065
     Dates: start: 201110, end: 201110
  14. BOTOX [Suspect]
     Active Substance: ONABOTULINUMTOXINA
     Dosage: 150 IU, UNK SINGLE
     Route: 065
     Dates: start: 20130307, end: 20130307
  15. ZOMIG [Suspect]
     Active Substance: ZOLMITRIPTAN
     Indication: Migraine
     Dosage: UNK
     Route: 065
  16. ZOMIG [Suspect]
     Active Substance: ZOLMITRIPTAN
     Dosage: UNK
     Route: 065
  17. RELPAX [Suspect]
     Active Substance: ELETRIPTAN HYDROBROMIDE
     Indication: Migraine
     Dosage: UNK
     Route: 065
  18. RELPAX [Suspect]
     Active Substance: ELETRIPTAN HYDROBROMIDE
     Dosage: UNK
     Route: 065
  19. DICLOFENAC SODIUM [Suspect]
     Active Substance: DICLOFENAC SODIUM
     Indication: Migraine
     Dosage: UNK
     Route: 065
  20. VALPROIC ACID [Suspect]
     Active Substance: VALPROIC ACID
     Indication: Migraine
     Dosage: 500 MG, QD
     Route: 065
     Dates: start: 201211
  21. METAMIZOLE MAGNESIUM [Suspect]
     Active Substance: METAMIZOLE MAGNESIUM
     Indication: Migraine
     Dosage: UNK
     Route: 065
  22. METAMIZOLE MAGNESIUM [Suspect]
     Active Substance: METAMIZOLE MAGNESIUM
     Dosage: UNK
     Route: 065
  23. BROMAZEPAM [Suspect]
     Active Substance: BROMAZEPAM
     Indication: Migraine
     Dosage: 3 MG, QD
     Route: 065
  24. MAXALT [Suspect]
     Active Substance: RIZATRIPTAN BENZOATE
     Indication: Migraine
     Dosage: UNK
     Route: 065
  25. MAXALT [Suspect]
     Active Substance: RIZATRIPTAN BENZOATE
     Dosage: UNK
     Route: 065
  26. FLUNARIZINE HYDROCHLORIDE [Suspect]
     Active Substance: FLUNARIZINE HYDROCHLORIDE
     Indication: Migraine
     Dosage: 5 MG, QD
     Route: 065
  27. ACETAMINOPHEN\BELLADONNA LEAF\CAFFEINE\ERGOTAMINE TARTRATE [Suspect]
     Active Substance: ACETAMINOPHEN\BELLADONNA LEAF\CAFFEINE\ERGOTAMINE TARTRATE
     Indication: Migraine
     Dosage: UNK
     Route: 065
  28. ACETAMINOPHEN\BELLADONNA LEAF\CAFFEINE\ERGOTAMINE TARTRATE [Suspect]
     Active Substance: ACETAMINOPHEN\BELLADONNA LEAF\CAFFEINE\ERGOTAMINE TARTRATE
     Dosage: UNK
     Route: 065
  29. XEOMIN [Suspect]
     Active Substance: INCOBOTULINUMTOXINA
     Indication: Migraine
     Dosage: 150 IU, SINGLE
     Route: 065
     Dates: start: 20130307, end: 20130307
  30. AMITRIPTYLINE HYDROCHLORIDE [Suspect]
     Active Substance: AMITRIPTYLINE HYDROCHLORIDE
     Indication: Migraine
     Dosage: 10 MG, QD
     Route: 065
     Dates: start: 201110
  31. AMITRIPTYLINE HYDROCHLORIDE [Suspect]
     Active Substance: AMITRIPTYLINE HYDROCHLORIDE
     Dosage: 1 DOSAGE FORM
     Route: 065
  32. AMITRIPTYLINE HYDROCHLORIDE [Suspect]
     Active Substance: AMITRIPTYLINE HYDROCHLORIDE
     Dosage: 10 MG, QD
     Route: 065
     Dates: start: 201211
  33. METAMIZOLE SODIUM [Suspect]
     Active Substance: METAMIZOLE SODIUM
     Indication: Migraine
     Dosage: UNK
     Route: 065
  34. METAMIZOLE SODIUM [Suspect]
     Active Substance: METAMIZOLE SODIUM
     Dosage: UNK
     Route: 065
  35. BROMAZEPAM [Suspect]
     Active Substance: BROMAZEPAM
     Indication: Migraine
     Dosage: 3 MILLIGRAM, QD
     Route: 065

REACTIONS (5)
  - Drug abuse [Unknown]
  - Product use in unapproved indication [Unknown]
  - Paraesthesia [Unknown]
  - Insomnia [Unknown]
  - Therapy partial responder [Unknown]

NARRATIVE: CASE EVENT DATE: 20090201
